FAERS Safety Report 10409678 (Version 2)
Quarter: 2014Q3

REPORT INFORMATION
  Report Type: Spontaneous
  Country: DE (occurrence: DE)
  Receive Date: 20140826
  Receipt Date: 20140905
  Transmission Date: 20150326
  Serious: Yes (Other)
  Sender: FDA-Public Use
  Company Number: PHHY2014DE103900

PATIENT
  Sex: Male
  Weight: 85 kg

DRUGS (5)
  1. DAFIRO [Suspect]
     Active Substance: AMLODIPINE\VALSARTAN
     Dosage: 28 DF,QD (160 MG VALS, 10 MG AMLO)
     Route: 048
  2. ACETYLSALICYLIC ACID [Suspect]
     Active Substance: ASPIRIN
     Dosage: 10 DF, QD
     Route: 048
  3. METOPROLOL [Suspect]
     Active Substance: METOPROLOL
     Dosage: 20 DF, QD
     Route: 048
  4. IBUPROFEN. [Suspect]
     Active Substance: IBUPROFEN
     Dosage: 10 DF, QD
     Route: 048
  5. HYGROTON [Suspect]
     Active Substance: CHLORTHALIDONE
     Dosage: 10 DF, QD
     Route: 048

REACTIONS (3)
  - Intentional overdose [Unknown]
  - Suicide attempt [Unknown]
  - Vomiting [Unknown]
